FAERS Safety Report 7680450-0 (Version None)
Quarter: 2011Q3

REPORT INFORMATION
  Report Type: 
  Country: None (occurrence: None)
  Receive Date: 20110812
  Receipt Date: 20110803
  Transmission Date: 20111222
  Serious: Yes (Hospitalization, Other)
  Sender: FDA-Public Use
  Company Number: US-CEPHALON-2011004105

PATIENT
  Age: 46 Year
  Sex: Male

DRUGS (9)
  1. ESCITALOPRAM [Concomitant]
  2. BUPROPION HCL [Concomitant]
  3. ASPIRIN [Concomitant]
  4. TOPIRAMATE [Concomitant]
  5. DIAZEPAM [Concomitant]
  6. MODAFINIL [Suspect]
     Route: 048
  7. PALIPERIDONE [Concomitant]
  8. SIMVASTATIN [Concomitant]
  9. PANTOPRAZOLE [Concomitant]

REACTIONS (5)
  - DRUG ABUSE [None]
  - EUPHORIC MOOD [None]
  - BIPOLAR DISORDER [None]
  - DELUSION OF GRANDEUR [None]
  - INSOMNIA [None]
